FAERS Safety Report 11442493 (Version 1)
Quarter: 2015Q3

REPORT INFORMATION
  Report Type: Spontaneous
  Country: CN (occurrence: CN)
  Receive Date: 20150901
  Receipt Date: 20150901
  Transmission Date: 20151125
  Serious: Yes (Other)
  Sender: FDA-Public Use
  Company Number: CN-BAXTER-2015BAX047140

PATIENT
  Age: 67 Year
  Sex: Female

DRUGS (2)
  1. SODIUM LACTATE RINGER^S INJECTION 500ML [Suspect]
     Active Substance: RINGER^S SOLUTION, LACTATED
     Indication: PARENTERAL NUTRITION
     Route: 041
     Dates: start: 20150112, end: 20150120
  2. SODIUM LACTATE RINGER^S INJECTION 500ML [Suspect]
     Active Substance: RINGER^S SOLUTION, LACTATED
     Indication: OFF LABEL USE

REACTIONS (2)
  - Dizziness [Recovering/Resolving]
  - Rash [Recovering/Resolving]

NARRATIVE: CASE EVENT DATE: 20150120
